FAERS Safety Report 8063663-8 (Version None)
Quarter: 2011Q4

REPORT INFORMATION
  Report Type: 
  Country: None (occurrence: None)
  Receive Date: 20111220
  Receipt Date: 20110609
  Transmission Date: 20120403
  Serious: Yes (Other)
  Sender: FDA-Public Use
  Company Number: 2011002942

PATIENT
  Sex: Male

DRUGS (1)
  1. ACTIQ [Suspect]

REACTIONS (1)
  - TOOTH EROSION [None]
